FAERS Safety Report 5495379-6 (Version None)
Quarter: 2007Q4

REPORT INFORMATION
  Report Type: 
  Country: None (occurrence: None)
  Receive Date: 20071024
  Receipt Date: 20071012
  Transmission Date: 20080405
  Serious: Yes (Hospitalization)
  Sender: FDA-Public Use
  Company Number: US-GENENTECH-249411

PATIENT
  Sex: Female
  Weight: 72.5 kg

DRUGS (7)
  1. BLINDED BEVACIZUMAB [Suspect]
     Indication: DRUG USE FOR UNKNOWN INDICATION
     Dosage: 1140 MG, Q3W
     Route: 042
     Dates: start: 20070419
  2. CARBOPLATIN [Suspect]
     Indication: DRUG USE FOR UNKNOWN INDICATION
     Dosage: 1140 MG, Q3W
     Route: 042
     Dates: start: 20070419
  3. GEMCITABINE [Suspect]
     Indication: DRUG USE FOR UNKNOWN INDICATION
     Dosage: 1140 MG, Q3W
     Route: 042
     Dates: start: 20070419
  4. BLINDED PLACEBO [Suspect]
     Indication: DRUG USE FOR UNKNOWN INDICATION
     Dosage: 1140 MG, Q3W
     Route: 042
     Dates: start: 20070419
  5. GEMCITABINE HCL [Suspect]
     Indication: DRUG USE FOR UNKNOWN INDICATION
     Dosage: 1860 MG, UNK
     Route: 042
     Dates: start: 20070419
  6. CARBOPLATIN [Suspect]
     Indication: DRUG USE FOR UNKNOWN INDICATION
     Dosage: 384 MG, Q3W
     Route: 042
     Dates: start: 20070419
  7. NEUPOGEN [Concomitant]
     Indication: DRUG USE FOR UNKNOWN INDICATION
     Dosage: 300 A?G, UNK
     Dates: start: 20071010

REACTIONS (1)
  - PYREXIA [None]
